FAERS Safety Report 8344953-8 (Version None)
Quarter: 2012Q2

REPORT INFORMATION
  Report Type: 
  Country: None (occurrence: None)
  Receive Date: 20120508
  Receipt Date: 20120426
  Transmission Date: 20120825
  Serious: Yes (Disabling, Congenital Anomaly)
  Sender: FDA-Public Use
  Company Number: FR-MERCK-1204FRA00117B1

PATIENT

DRUGS (2)
  1. ISENTRESS [Suspect]
     Indication: HIV INFECTION
     Route: 064
  2. LAMIVUDINE AND ZIDOVUDINE [Concomitant]
     Indication: HIV INFECTION
     Route: 064

REACTIONS (3)
  - HEART DISEASE CONGENITAL [None]
  - FOETAL EXPOSURE DURING PREGNANCY [None]
  - UNDERWEIGHT [None]
